FAERS Safety Report 7233721-6 (Version None)
Quarter: 2011Q1

REPORT INFORMATION
  Report Type: 
  Country: None (occurrence: None)
  Receive Date: 20110119
  Receipt Date: 20110104
  Transmission Date: 20110831
  Serious: No
  Sender: FDA-Public Use
  Company Number: US-B.I. PHARMACEUTICALS,INC./RIDGEFIELD-2011-BP-00455BP

PATIENT
  Age: 80 Year
  Sex: Female

DRUGS (3)
  1. ZANTAC 150 [Suspect]
     Indication: REFLUX GASTRITIS
     Dosage: 1 TAB DAILY PRN
     Route: 048
  2. SIMVASTATIN [Concomitant]
     Indication: BLOOD CHOLESTEROL INCREASED
  3. PROPRANOLOL [Concomitant]
     Indication: HEART RATE IRREGULAR

REACTIONS (1)
  - DRUG INEFFECTIVE [None]
